FAERS Safety Report 12766498 (Version 1)
Quarter: 2016Q3

REPORT INFORMATION
  Report Type: Report from Study
  Country: DE (occurrence: DE)
  Receive Date: 20160921
  Receipt Date: 20160921
  Transmission Date: 20161109
  Serious: Yes (Hospitalization)
  Sender: FDA-Public Use
  Company Number: DE-ABBVIE-16K-062-1728045-00

PATIENT
  Age: 22 Year
  Sex: Male

DRUGS (3)
  1. ARCOXIA [Concomitant]
     Active Substance: ETORICOXIB
     Indication: PRODUCT USED FOR UNKNOWN INDICATION
  2. HUMIRA [Suspect]
     Active Substance: ADALIMUMAB
     Indication: ANKYLOSING SPONDYLITIS
     Route: 058
     Dates: start: 20160425
  3. NOVAMINSULFON [Concomitant]
     Active Substance: METAMIZOLE
     Indication: PRODUCT USED FOR UNKNOWN INDICATION

REACTIONS (7)
  - Pain in extremity [Recovering/Resolving]
  - Inflammatory marker increased [Recovering/Resolving]
  - Musculoskeletal pain [Recovering/Resolving]
  - Mobility decreased [Recovering/Resolving]
  - Arthropathy [Recovering/Resolving]
  - Abasia [Recovering/Resolving]
  - Impaired work ability [Recovering/Resolving]

NARRATIVE: CASE EVENT DATE: 201609
